FAERS Safety Report 21635297 (Version 1)
Quarter: 2022Q4

REPORT INFORMATION
  Report Type: Report from Study
  Country: FR (occurrence: FR)
  Receive Date: 20221123
  Receipt Date: 20221123
  Transmission Date: 20230112
  Serious: Yes (Hospitalization)
  Sender: FDA-Public Use
  Company Number: FR-ABBVIE-4211288

PATIENT
  Age: 75 Year
  Sex: Male

DRUGS (2)
  1. CARBIDOPA\LEVODOPA [Suspect]
     Active Substance: CARBIDOPA\LEVODOPA
     Indication: Parkinson^s disease
     Route: 065
     Dates: start: 20220322
  2. CARBIDOPA\LEVODOPA [Suspect]
     Active Substance: CARBIDOPA\LEVODOPA

REACTIONS (9)
  - Fall [Unknown]
  - Erythema [Unknown]
  - Loss of consciousness [Unknown]
  - Gastrointestinal disorder [Recovered/Resolved]
  - Eye movement disorder [Unknown]
  - Malaise [Unknown]
  - Pallor [Unknown]
  - Fall [Unknown]
  - Bruxism [Unknown]

NARRATIVE: CASE EVENT DATE: 20221108
